FAERS Safety Report 14612871 (Version 4)
Quarter: 2018Q1

REPORT INFORMATION
  Report Type: Spontaneous
  Country: BR (occurrence: BR)
  Receive Date: 20180308
  Receipt Date: 20180329
  Transmission Date: 20180509
  Serious: Yes (Death)
  Sender: FDA-Public Use
  Company Number: BR-SA-2018SA063263

PATIENT
  Sex: Male
  Weight: 70 kg

DRUGS (1)
  1. CLEXANE [Suspect]
     Active Substance: ENOXAPARIN SODIUM
     Indication: PROPHYLAXIS
     Route: 058
     Dates: end: 201801

REACTIONS (2)
  - Oncologic complication [Fatal]
  - Injection site haematoma [Unknown]

NARRATIVE: CASE EVENT DATE: 201801
